FAERS Safety Report 7745239-2 (Version None)
Quarter: 2011Q3

REPORT INFORMATION
  Report Type: 
  Country: None (occurrence: None)
  Receive Date: 20110913
  Receipt Date: 20110905
  Transmission Date: 20111222
  Serious: Yes (Death)
  Sender: FDA-Public Use
  Company Number: CO-JNJFOC-20110903973

PATIENT
  Age: 69 Year
  Sex: Female

DRUGS (1)
  1. RISPERDAL CONSTA [Suspect]
     Indication: BIPOLAR DISORDER
     Route: 030
     Dates: start: 20100621

REACTIONS (3)
  - PROCEDURAL COMPLICATION [None]
  - RESPIRATORY FAILURE [None]
  - GALLBLADDER OPERATION [None]
